FAERS Safety Report 6317538-2 (Version None)
Quarter: 2009Q3

REPORT INFORMATION
  Report Type: 
  Country: None (occurrence: None)
  Receive Date: 20090821
  Receipt Date: 20090813
  Transmission Date: 20100115
  Serious: Yes (Other)
  Sender: FDA-Public Use
  Company Number: US-ROCHE-650316

PATIENT
  Age: 76 Year
  Sex: Female

DRUGS (1)
  1. XELODA [Suspect]
     Indication: BREAST CANCER
     Dosage: 12 DAYS ON AND 7 DAYS OFF
     Route: 048
     Dates: start: 20090401

REACTIONS (4)
  - DIZZINESS [None]
  - POLYURIA [None]
  - THIRST [None]
  - TUMOUR MARKER INCREASED [None]
